FAERS Safety Report 7778218-X (Version None)
Quarter: 2011Q3

REPORT INFORMATION
  Report Type: 
  Country: None (occurrence: None)
  Receive Date: 20110922
  Receipt Date: 20110913
  Transmission Date: 20111222
  Serious: Yes (Other)
  Sender: FDA-Public Use
  Company Number: US-MERCK-1109USA01586

PATIENT
  Age: 13 Year
  Sex: Female

DRUGS (4)
  1. DECADRON [Suspect]
     Indication: TONGUE OEDEMA
     Route: 048
  2. PHENYLEPHRINE [Concomitant]
     Indication: TONGUE OEDEMA
     Route: 065
  3. TRIAMCINOLONE ACETONIDE [Concomitant]
     Indication: TONGUE OEDEMA
     Route: 065
  4. FUROSEMIDE [Concomitant]
     Indication: TONGUE OEDEMA
     Route: 065

REACTIONS (1)
  - DRUG INEFFECTIVE [None]
